FAERS Safety Report 8327560-2 (Version None)
Quarter: 2012Q2

REPORT INFORMATION
  Report Type: 
  Country: None (occurrence: None)
  Receive Date: 20120502
  Receipt Date: 20120420
  Transmission Date: 20120825
  Serious: No
  Sender: FDA-Public Use
  Company Number: US-BAYER-2012-039919

PATIENT
  Age: 85 Year
  Sex: Male
  Weight: 75 kg

DRUGS (3)
  1. NAPROXEN SODIUM [Suspect]
     Indication: BACK PAIN
     Dosage: UNK
     Route: 048
     Dates: start: 20120301
  2. VITAMIN E [Concomitant]
  3. VITAMIN C [Concomitant]

REACTIONS (1)
  - PAIN [None]
